FAERS Safety Report 15004372 (Version 6)
Quarter: 2019Q2

REPORT INFORMATION
  Report Type: Spontaneous
  Country: US (occurrence: US)
  Receive Date: 20180613
  Receipt Date: 20190515
  Transmission Date: 20190711
  Serious: No
  Sender: FDA-Public Use
  Company Number: US-PFIZER INC-2018238994

PATIENT
  Age: 57 Year
  Sex: Female
  Weight: 69 kg

DRUGS (2)
  1. IBRANCE [Suspect]
     Active Substance: PALBOCICLIB
     Indication: BREAST CANCER STAGE IV
     Dosage: 125 MG, CYCLIC (ONCE A DAY WITH FOOD FOR 21 DAYS)
     Route: 048
     Dates: start: 20180301, end: 20180508
  2. IBRANCE [Suspect]
     Active Substance: PALBOCICLIB
     Dosage: 125 MG, CYCLIC (ONCE A DAY WITH FOOD FOR 21 DAYS)
     Route: 048
     Dates: start: 20180301, end: 20180508

REACTIONS (1)
  - Neoplasm progression [Recovering/Resolving]

NARRATIVE: CASE EVENT DATE: 201805
